FAERS Safety Report 24026052 (Version 2)
Quarter: 2024Q3

REPORT INFORMATION
  Report Type: Report from Study
  Country: CN (occurrence: CN)
  Receive Date: 20240628
  Receipt Date: 20240710
  Transmission Date: 20241016
  Serious: No
  Sender: ROCHE
  Company Number: CN-ROCHE-3060938

PATIENT
  Age: 56 Year
  Sex: Male
  Weight: 63.0 kg

DRUGS (2)
  1. ALECTINIB [Suspect]
     Active Substance: ALECTINIB
     Indication: Lung cancer metastatic
     Dosage: DOSE LAST STUDY DRUG ADMIN PRIOR AE IS 600 MG,  MOST RECENT DOSE WAS ADMINISTERED PRIOR TO AE ON 01/
     Route: 048
     Dates: start: 20210908
  2. GINSENOSIDES [Concomitant]
     Active Substance: GINSENOSIDES
     Route: 048
     Dates: start: 20210824, end: 20211201

REACTIONS (4)
  - Aspartate aminotransferase increased [Not Recovered/Not Resolved]
  - Alanine aminotransferase increased [Not Recovered/Not Resolved]
  - Neutrophil count decreased [Recovered/Resolved]
  - Blood bilirubin increased [Not Recovered/Not Resolved]

NARRATIVE: CASE EVENT DATE: 20220221
